FAERS Safety Report 21590374 (Version 1)
Quarter: 2022Q4

REPORT INFORMATION
  Report Type: Spontaneous
  Country: BR (occurrence: BR)
  Receive Date: 20221114
  Receipt Date: 20221114
  Transmission Date: 20230113
  Serious: Yes (Other)
  Sender: FDA-Public Use
  Company Number: ALC2022BR005233

PATIENT
  Age: 77 Year
  Sex: Female

DRUGS (1)
  1. AZOPT [Suspect]
     Active Substance: BRINZOLAMIDE
     Indication: Glaucoma
     Dosage: 5 ML
     Route: 065

REACTIONS (4)
  - Cataract [Unknown]
  - Condition aggravated [Unknown]
  - Product container seal issue [Unknown]
  - Vision blurred [Not Recovered/Not Resolved]
